FAERS Safety Report 9938620 (Version 2)
Quarter: 2014Q2

REPORT INFORMATION
  Report Type: Spontaneous
  Country: DE (occurrence: DE)
  Receive Date: 20140303
  Receipt Date: 20140414
  Transmission Date: 20141212
  Serious: Yes (Other)
  Sender: FDA-Public Use
  Company Number: DE-JNJFOC-20140217490

PATIENT
  Age: 85 Year
  Sex: Male
  Weight: 78 kg

DRUGS (7)
  1. XARELTO [Suspect]
     Indication: ATRIAL FIBRILLATION
     Route: 048
     Dates: start: 20131017, end: 20140211
  2. XARELTO [Suspect]
     Indication: CEREBROVASCULAR ACCIDENT PROPHYLAXIS
     Route: 048
     Dates: start: 20131017, end: 20140211
  3. VALPROATE SODIUM [Concomitant]
     Route: 065
  4. METOPROLOL [Concomitant]
     Route: 065
  5. TAMSULOSIN [Concomitant]
     Route: 065
  6. NOVALGIN [Concomitant]
     Route: 065
  7. LOSARTAN POTASSIUM W/HYDROCHLOROTHIAZIDE [Concomitant]
     Route: 065

REACTIONS (2)
  - Thrombocytopenia [Recovered/Resolved]
  - Off label use [Unknown]
